FAERS Safety Report 9752798 (Version 2)
Quarter: 2014Q2

REPORT INFORMATION
  Report Type: Spontaneous
  Country: FR (occurrence: FR)
  Receive Date: 20131213
  Receipt Date: 20140603
  Transmission Date: 20141212
  Serious: Yes (Hospitalization)
  Sender: FDA-Public Use
  Company Number: FR-SA-2013SA126574

PATIENT
  Age: 82 Year
  Sex: Male

DRUGS (6)
  1. LOVENOX [Suspect]
     Indication: HIP ARTHROPLASTY
     Route: 058
  2. PROFENID [Suspect]
     Indication: ANTIINFLAMMATORY THERAPY
     Route: 042
  3. TAHOR [Concomitant]
     Route: 048
  4. PRIMPERAN [Concomitant]
  5. DOLIPRANE [Concomitant]
  6. INEXIUM [Concomitant]
     Indication: ANTIINFLAMMATORY THERAPY

REACTIONS (2)
  - Gastroduodenal ulcer [Recovered/Resolved]
  - Upper gastrointestinal haemorrhage [Recovering/Resolving]
